FAERS Safety Report 12498804 (Version 1)
Quarter: 2016Q2

REPORT INFORMATION
  Report Type: Spontaneous
  Country: US (occurrence: None)
  Receive Date: 20160624
  Receipt Date: 20160624
  Transmission Date: 20160815
  Serious: Yes (Other)
  Sender: FDA-Public Use
  Company Number: None

PATIENT
  Age: 22 Year
  Sex: Male
  Weight: 86.18 kg

DRUGS (2)
  1. STRATTERA [Suspect]
     Active Substance: ATOMOXETINE HYDROCHLORIDE
     Indication: ANXIETY
     Route: 048
     Dates: start: 20160606, end: 20160622
  2. STRATTERA [Suspect]
     Active Substance: ATOMOXETINE HYDROCHLORIDE
     Indication: ATTENTION DEFICIT/HYPERACTIVITY DISORDER
     Route: 048
     Dates: start: 20160606, end: 20160622

REACTIONS (9)
  - Intentional product use issue [None]
  - Anger [None]
  - Self-injurious ideation [None]
  - Violence-related symptom [None]
  - Depressed mood [None]
  - Aggression [None]
  - Anxiety [None]
  - Crying [None]
  - Mental impairment [None]

NARRATIVE: CASE EVENT DATE: 20160622
